FAERS Safety Report 7595599-0 (Version None)
Quarter: 2011Q3

REPORT INFORMATION
  Report Type: 
  Country: None (occurrence: None)
  Receive Date: 20110707
  Receipt Date: 20110630
  Transmission Date: 20111222
  Serious: Yes (Death, Life-Threatening)
  Sender: FDA-Public Use
  Company Number: JP-GLAXOSMITHKLINE-B0712228A

PATIENT
  Sex: Female
  Weight: 58 kg

DRUGS (16)
  1. METHOTREXATE [Concomitant]
     Indication: IMMUNOSUPPRESSION
     Dosage: 21MG PER DAY
     Route: 065
     Dates: start: 20090214, end: 20090220
  2. KYTRIL [Concomitant]
     Dosage: 3MG PER DAY
     Route: 042
     Dates: start: 20090206, end: 20090212
  3. LAC B [Concomitant]
     Dosage: 3G PER DAY
     Route: 048
     Dates: start: 20090211, end: 20090217
  4. ALKERAN [Suspect]
     Indication: ALLOGENIC BONE MARROW TRANSPLANTATION THERAPY
     Dosage: 99.2MG PER DAY
     Route: 042
     Dates: start: 20090210, end: 20090211
  5. FLUDARA [Suspect]
     Indication: ALLOGENIC BONE MARROW TRANSPLANTATION THERAPY
     Dosage: 35.4MG PER DAY
     Route: 042
     Dates: start: 20090206, end: 20090210
  6. ZOVIRAX [Concomitant]
     Dosage: 1000MG PER DAY
     Route: 048
     Dates: end: 20090407
  7. CIPROFLOXACIN HCL [Concomitant]
     Dosage: 1200MG PER DAY
     Route: 048
     Dates: end: 20090224
  8. CYCLOSPORINE [Concomitant]
     Indication: IMMUNOSUPPRESSION
     Dosage: 154MG PER DAY
     Route: 065
     Dates: start: 20090212, end: 20090322
  9. MAGMITT [Concomitant]
     Dosage: 990MG PER DAY
     Route: 048
     Dates: end: 20090217
  10. PROGRAF [Concomitant]
     Indication: IMMUNOSUPPRESSION
     Dosage: .3MG PER DAY
     Route: 065
     Dates: start: 20090323, end: 20090331
  11. PROMAC [Concomitant]
     Dosage: 150MG PER DAY
     Route: 048
     Dates: end: 20090224
  12. SULFAMETHOXAZOLE [Concomitant]
     Dosage: 4IUAX PER DAY
     Route: 048
     Dates: end: 20090211
  13. SALOBEL [Concomitant]
     Dosage: 200MG PER DAY
     Route: 048
     Dates: end: 20090224
  14. FUROSEMIDE [Concomitant]
     Dosage: 260MG PER DAY
     Route: 042
  15. METHYLPREDNISOLONE SODIUM SUCCINATE [Concomitant]
     Indication: IMMUNOSUPPRESSION
     Dosage: 1000MG PER DAY
     Route: 042
     Dates: start: 20090228, end: 20090314
  16. ITRACONAZOLE [Concomitant]
     Dosage: 30ML PER DAY
     Route: 048
     Dates: end: 20090217

REACTIONS (3)
  - SEPSIS [None]
  - ANGIOPATHY [None]
  - FEBRILE NEUTROPENIA [None]
